FAERS Safety Report 5759114-6 (Version None)
Quarter: 2008Q2

REPORT INFORMATION
  Report Type: 
  Country: None (occurrence: None)
  Receive Date: 20080604
  Receipt Date: 20080523
  Transmission Date: 20081010
  Serious: Yes (Hospitalization, Other)
  Sender: FDA-Public Use
  Company Number: US-PFIZER INC-2008007755

PATIENT
  Age: 25 Year
  Sex: Male
  Weight: 113.4 kg

DRUGS (9)
  1. XANAX [Suspect]
     Indication: DEPRESSION
     Route: 048
     Dates: start: 20070216, end: 20070405
  2. XANAX [Suspect]
     Indication: ANXIETY
  3. LEXAPRO [Suspect]
     Indication: DEPRESSION
     Route: 048
     Dates: start: 20070201, end: 20070405
  4. LEXAPRO [Suspect]
     Indication: ANXIETY
  5. EFFEXOR [Suspect]
  6. PAROXETINE HCL [Suspect]
     Indication: DEPRESSION
     Route: 048
     Dates: start: 20070309, end: 20070405
  7. PAROXETINE HCL [Suspect]
     Indication: ANXIETY
  8. RISPERDAL [Concomitant]
     Indication: BIPOLAR DISORDER
     Dosage: DAILY DOSE:9MG
     Dates: start: 20070321, end: 20070403
  9. LITHIUM CARBONATE [Concomitant]
     Dates: start: 20070321, end: 20070403

REACTIONS (8)
  - AGITATION [None]
  - ANGER [None]
  - ANXIETY [None]
  - DEPRESSION [None]
  - MULTIPLE DRUG OVERDOSE INTENTIONAL [None]
  - ROAD TRAFFIC ACCIDENT [None]
  - SUICIDAL IDEATION [None]
  - SUICIDE ATTEMPT [None]
